FAERS Safety Report 6542539-9 (Version None)
Quarter: 2010Q1

REPORT INFORMATION
  Report Type: 
  Country: None (occurrence: None)
  Receive Date: 20100119
  Receipt Date: 20100108
  Transmission Date: 20100710
  Serious: Yes (Other)
  Sender: FDA-Public Use
  Company Number: JP-PFIZER INC-2009306067

PATIENT
  Age: 29 Year
  Sex: Female
  Weight: 45 kg

DRUGS (8)
  1. SOLU-MEDROL [Suspect]
     Indication: ASTHMA
     Dosage: 120 MG, 1X/DAY
     Route: 042
     Dates: start: 20091113, end: 20091113
  2. SOLU-CORTEF [Suspect]
     Indication: ASTHMA
     Dosage: 200 MG, 1X/DAY
     Route: 042
     Dates: start: 20091113, end: 20091113
  3. ZYRTEC [Concomitant]
     Route: 048
  4. THEO-DUR [Concomitant]
     Route: 048
  5. MUCOSOLVAN [Concomitant]
     Route: 048
  6. ADVAIR [Concomitant]
     Route: 055
  7. GASTER [Concomitant]
     Route: 048
  8. HOKUNALIN [Concomitant]
     Route: 062

REACTIONS (2)
  - DYSPNOEA [None]
  - OXYGEN SATURATION DECREASED [None]
